FAERS Safety Report 9604526 (Version 2)
Quarter: 2014Q1

REPORT INFORMATION
  Report Type: Spontaneous
  Country: US (occurrence: US)
  Receive Date: 20131008
  Receipt Date: 20140317
  Transmission Date: 20141002
  Serious: Yes (Other)
  Sender: FDA-Public Use
  Company Number: US-BAYER-2013-120889

PATIENT
  Age: 23 Year
  Sex: Female
  Weight: 108.84 kg

DRUGS (3)
  1. MIRENA [Suspect]
     Indication: CONTRACEPTION
     Dosage: 20 MCG/24HR, CONT
     Route: 015
     Dates: start: 20101020, end: 20120430
  2. SYNTHROID [Concomitant]
     Dosage: 200 MCG
     Dates: start: 201101, end: 20120426
  3. CELEXA [Concomitant]
     Dosage: 20 MG, UNK
     Dates: start: 20110426

REACTIONS (8)
  - Uterine perforation [None]
  - Procedural pain [None]
  - Injury [None]
  - Pain [None]
  - Emotional distress [None]
  - General physical health deterioration [None]
  - Scar [None]
  - Device issue [None]
